FAERS Safety Report 18078165 (Version 4)
Quarter: 2020Q4

REPORT INFORMATION
  Report Type: Spontaneous
  Country: US (occurrence: US)
  Receive Date: 20200727
  Receipt Date: 20201013
  Transmission Date: 20210113
  Serious: Yes (Hospitalization)
  Sender: FDA-Public Use
  Company Number: US-SEATTLE GENETICS-2020SGN02637

PATIENT
  Sex: Female

DRUGS (3)
  1. CAPECITABINE. [Concomitant]
     Active Substance: CAPECITABINE
     Indication: BREAST CANCER FEMALE
  2. TUKYSA [Suspect]
     Active Substance: TUCATINIB
     Indication: BREAST CANCER FEMALE
  3. IRON [Concomitant]
     Active Substance: IRON
     Indication: BLOOD IRON DECREASED

REACTIONS (22)
  - Lip pain [Unknown]
  - Abdominal discomfort [Recovering/Resolving]
  - Oral disorder [Unknown]
  - Nausea [Recovering/Resolving]
  - Memory impairment [Unknown]
  - Joint swelling [Unknown]
  - Peripheral swelling [Unknown]
  - Blood iron decreased [Unknown]
  - Blood iron increased [Unknown]
  - Unevaluable event [Unknown]
  - Product dose omission issue [Unknown]
  - Abdominal distension [Recovering/Resolving]
  - Fatigue [Unknown]
  - Dehydration [Unknown]
  - Gastrointestinal disorder [Unknown]
  - Oral pain [Unknown]
  - Hospitalisation [Unknown]
  - Muscle spasms [Unknown]
  - Malaise [Unknown]
  - Tumour marker increased [Unknown]
  - Red blood cell count decreased [Unknown]
  - Diarrhoea [Unknown]
